FAERS Safety Report 5194845-0 (Version None)
Quarter: 2006Q4

REPORT INFORMATION
  Report Type: 
  Country: None (occurrence: None)
  Receive Date: 20061229
  Receipt Date: 20060321
  Transmission Date: 20070319
  Serious: Yes (Death, Life-Threatening, Hospitalization)
  Sender: FDA-Public Use
  Company Number: 2006PK00532

PATIENT
  Age: 82 Year
  Sex: Male
  Weight: 56 kg

DRUGS (10)
  1. SEROQUEL [Suspect]
     Route: 048
     Dates: start: 20050915, end: 20050916
  2. BELOC MITE [Interacting]
     Route: 048
     Dates: end: 20060916
  3. RISPERDAL [Suspect]
     Route: 048
     Dates: end: 20050822
  4. RISPERDAL [Suspect]
     Route: 048
     Dates: start: 20050823, end: 20050901
  5. RISPERDAL [Suspect]
     Route: 048
     Dates: start: 20050902, end: 20050914
  6. RISPERDAL [Suspect]
     Route: 048
     Dates: start: 20050915, end: 20050916
  7. DOMINAL [Suspect]
     Dosage: LONG TERM MEDICATION
     Route: 048
     Dates: end: 20050916
  8. ENABETA [Concomitant]
     Dosage: 10/25
     Route: 048
     Dates: end: 20050916
  9. PLAVIX [Concomitant]
     Route: 048
     Dates: end: 20050916
  10. ALNA [Concomitant]
     Route: 048
     Dates: end: 20050916

REACTIONS (3)
  - DEATH [None]
  - DRUG INTERACTION [None]
  - SUDDEN CARDIAC DEATH [None]
